FAERS Safety Report 24720218 (Version 2)
Quarter: 2025Q3

REPORT INFORMATION
  Report Type: Spontaneous
  Country: EU (occurrence: EU)
  Receive Date: 20241211
  Receipt Date: 20250806
  Transmission Date: 20251020
  Serious: Yes (Death, Hospitalization, Other)
  Sender: ROCHE
  Company Number: None

PATIENT
  Age: 41 Year
  Sex: Female

DRUGS (5)
  1. BEVACIZUMAB [Suspect]
     Active Substance: BEVACIZUMAB
     Indication: Cervix cancer metastatic
     Route: 065
     Dates: start: 20230403
  2. PEMBROLIZUMAB [Suspect]
     Active Substance: PEMBROLIZUMAB
     Indication: Cervix cancer metastatic
     Route: 065
     Dates: start: 20230403
  3. CARBOPLATIN [Suspect]
     Active Substance: CARBOPLATIN
     Indication: Cervix cancer metastatic
     Route: 065
     Dates: start: 20230403
  4. PACLITAXEL [Suspect]
     Active Substance: PACLITAXEL
     Indication: Cervix cancer metastatic
     Route: 065
     Dates: start: 20230403
  5. REMICADE [Suspect]
     Active Substance: INFLIXIMAB
     Indication: Immune-mediated lung disease
     Route: 042

REACTIONS (8)
  - Immune-mediated lung disease [Fatal]
  - Pneumonia [Unknown]
  - General physical health deterioration [Unknown]
  - Immune-mediated hepatitis [Unknown]
  - Therapy partial responder [Unknown]
  - Candida test positive [Unknown]
  - Pleural effusion [Unknown]
  - Blood glucose increased [Unknown]

NARRATIVE: CASE EVENT DATE: 20230605
